FAERS Safety Report 8506471-3 (Version None)
Quarter: 2012Q3

REPORT INFORMATION
  Report Type: 
  Country: None (occurrence: None)
  Receive Date: 20120706
  Receipt Date: 20120706
  Transmission Date: 20120928
  Serious: Yes (Other)
  Sender: FDA-Public Use
  Company Number: None

PATIENT
  Age: 30 Year
  Sex: Female
  Weight: 66 kg

DRUGS (4)
  1. AVEENO POS AGELESS RECONDITIONING NT CRM PRESCRIBED DOSE, 2X, TOPICAL [Suspect]
     Dosage: MOISTURIZER
  2. BIOSIL [Concomitant]
  3. IRON SUPPLEMENT [Concomitant]
  4. BIOTIN [Concomitant]

REACTIONS (1)
  - HYPERSENSITIVITY [None]
